FAERS Safety Report 4651105-1 (Version None)
Quarter: 2005Q2

REPORT INFORMATION
  Report Type: 
  Country: None (occurrence: None)
  Receive Date: 20050503
  Receipt Date: 20050425
  Transmission Date: 20051028
  Serious: Yes (Other)
  Sender: FDA-Public Use
  Company Number: US-ROCHE-403061

PATIENT
  Age: 37 Year
  Sex: Female
  Weight: 77.1 kg

DRUGS (4)
  1. PEGASYS [Suspect]
     Indication: HEPATITIS C
     Route: 058
     Dates: start: 20050422
  2. COPEGUS [Suspect]
     Indication: HEPATITIS C
     Route: 048
     Dates: start: 20050422
  3. PAXIL [Concomitant]
     Indication: PROPHYLAXIS
     Route: 048
  4. HYDROCODONE BITARTRATE [Concomitant]
     Indication: BACK PAIN
     Route: 048

REACTIONS (7)
  - CONVULSION [None]
  - DECREASED APPETITE [None]
  - DYSGEUSIA [None]
  - FATIGUE [None]
  - INSOMNIA [None]
  - RASH [None]
  - VISION BLURRED [None]
